FAERS Safety Report 24566306 (Version 1)
Quarter: 2024Q4

REPORT INFORMATION
  Report Type: Spontaneous
  Country: US (occurrence: None)
  Receive Date: 20241029
  Receipt Date: 20241029
  Transmission Date: 20250115
  Serious: Yes (unspecified)
  Sender: Public
  Company Number: None

PATIENT
  Age: 89 Year
  Sex: Male
  Weight: 72 kg

DRUGS (1)
  1. OXYCODONE HYDROCHLORIDE [Suspect]
     Active Substance: OXYCODONE HYDROCHLORIDE
     Indication: Pain
     Dosage: FREQUENCY : AS NEEDED;?
     Route: 048
     Dates: end: 20240713

REACTIONS (3)
  - Somnolence [None]
  - Sedation [None]
  - Respiratory depression [None]

NARRATIVE: CASE EVENT DATE: 20240713
